FAERS Safety Report 12353822 (Version 1)
Quarter: 2016Q2

REPORT INFORMATION
  Report Type: Other
  Country: CN (occurrence: CN)
  Receive Date: 20160511
  Receipt Date: 20160511
  Transmission Date: 20160815
  Serious: Yes (Disabling)
  Sender: FDA-Public Use
  Company Number: CN-ORCHID HEALTHCARE-1051832

PATIENT
  Age: 6 Year
  Sex: Male

DRUGS (1)
  1. LEVETIRACETAM. [Suspect]
     Active Substance: LEVETIRACETAM
     Indication: CONVULSION IN CHILDHOOD
     Route: 048

REACTIONS (2)
  - Pollakiuria [Recovered/Resolved]
  - Micturition urgency [None]
